FAERS Safety Report 11221144 (Version 1)
Quarter: 2015Q2

REPORT INFORMATION
  Report Type: Spontaneous
  Country: US (occurrence: US)
  Receive Date: 20150626
  Receipt Date: 20150626
  Transmission Date: 20150821
  Serious: No
  Sender: FDA-Public Use
  Company Number: US-SUN PHARMACEUTICAL INDUSTRIES LTD-2014SUN02054

PATIENT

DRUGS (4)
  1. DOXYCYCLINE HYCLATE. [Suspect]
     Active Substance: DOXYCYCLINE HYCLATE
     Indication: DENTAL IMPLANTATION
     Dosage: 20 MG, AM/PM
     Route: 065
     Dates: start: 20140717, end: 20140809
  2. PROGESTERON AND ESTROGEN CREAM [Concomitant]
     Dosage: USED FOR OVER 10 YEARS
  3. ARMOUR THYROID [Concomitant]
     Active Substance: THYROID, PORCINE\THYROID, UNSPECIFIED
     Dosage: USED FOR OVER 10 YEARS
  4. DOXYCYCLINE HYCLATE. [Suspect]
     Active Substance: DOXYCYCLINE HYCLATE
     Indication: INFLAMMATION

REACTIONS (3)
  - Arthralgia [Unknown]
  - Mobility decreased [Unknown]
  - Arthritis [Unknown]

NARRATIVE: CASE EVENT DATE: 201407
